FAERS Safety Report 9717501 (Version 3)
Quarter: 2015Q3

REPORT INFORMATION
  Report Type: Spontaneous
  Country: US (occurrence: US)
  Receive Date: 20131127
  Receipt Date: 20150803
  Transmission Date: 20151125
  Serious: No
  Sender: FDA-Public Use
  Company Number: US-GILEAD-2008-0019674

PATIENT
  Age: 76 Year
  Sex: Male

DRUGS (2)
  1. VENTAVIS [Concomitant]
     Active Substance: ILOPROST
     Dates: start: 200810
  2. LETAIRIS [Suspect]
     Active Substance: AMBRISENTAN
     Indication: PULMONARY ARTERIAL HYPERTENSION
     Route: 048
     Dates: end: 20081204

REACTIONS (2)
  - Drug ineffective [Recovered/Resolved]
  - Swelling [Not Recovered/Not Resolved]
